FAERS Safety Report 6823778-6 (Version None)
Quarter: 2010Q3

REPORT INFORMATION
  Report Type: 
  Country: None (occurrence: None)
  Receive Date: 20100708
  Receipt Date: 20060911
  Transmission Date: 20110219
  Serious: No
  Sender: FDA-Public Use
  Company Number: US-PFIZER INC-2006110089

PATIENT
  Sex: Female
  Weight: 51.71 kg

DRUGS (7)
  1. CHANTIX [Suspect]
     Route: 048
     Dates: start: 20060903
  2. FOSAMAX [Concomitant]
  3. PEPCID [Concomitant]
  4. LORAZEPAM [Concomitant]
  5. CALCIUM WITH VITAMIN D [Concomitant]
  6. FLOVENT [Concomitant]
  7. XALATAN [Concomitant]

REACTIONS (3)
  - INSOMNIA [None]
  - NAUSEA [None]
  - POLLAKIURIA [None]
